FAERS Safety Report 24811657 (Version 2)
Quarter: 2025Q1

REPORT INFORMATION
  Report Type: Report from Study
  Country: FR (occurrence: FR)
  Receive Date: 20250106
  Receipt Date: 20250117
  Transmission Date: 20250408
  Serious: Yes (Other)
  Sender: TEVA
  Company Number: FR-TEVA-VS-3282529

PATIENT

DRUGS (1)
  1. DOXORUBICIN [Suspect]
     Active Substance: DOXORUBICIN
     Indication: Bone sarcoma
     Route: 065

REACTIONS (1)
  - Febrile neutropenia [Unknown]
